FAERS Safety Report 9125158 (Version 1)
Quarter: 2013Q1

REPORT INFORMATION
  Report Type: Spontaneous
  Country: DE (occurrence: DE)
  Receive Date: 20130117
  Receipt Date: 20130117
  Transmission Date: 20140127
  Serious: Yes (Other)
  Sender: FDA-Public Use
  Company Number: PHHY2012DE100656

PATIENT
  Age: 84 Year
  Sex: Female

DRUGS (2)
  1. TRASITENSIN [Suspect]
     Dosage: UNK UKN, UNK
     Dates: end: 20121101
  2. BETASEMID [Concomitant]

REACTIONS (3)
  - Withdrawal syndrome [Unknown]
  - Drug dependence [Unknown]
  - Malaise [Unknown]
